FAERS Safety Report 13679836 (Version 4)
Quarter: 2017Q3

REPORT INFORMATION
  Report Type: Spontaneous
  Country: JP (occurrence: JP)
  Receive Date: 20170622
  Receipt Date: 20170818
  Transmission Date: 20171127
  Serious: Yes (Life-Threatening, Hospitalization, Disabling, Other)
  Sender: FDA-Public Use
  Company Number: JP-PFIZER INC-2017219751

PATIENT
  Age: 53 Year
  Sex: Female
  Weight: 34 kg

DRUGS (10)
  1. MAGNESIUM OXIDE. [Concomitant]
     Active Substance: MAGNESIUM OXIDE
     Indication: CONSTIPATION
     Dosage: 330 MG, 3X/DAY
     Route: 048
     Dates: start: 20170206, end: 20170417
  2. ALOXI [Concomitant]
     Active Substance: PALONOSETRON HYDROCHLORIDE
     Indication: PELVIC NEOPLASM
     Dosage: 0.75 MG, TWICE MONTHLY
     Route: 041
     Dates: start: 20170324, end: 20170417
  3. PACLITAXEL. [Suspect]
     Active Substance: PACLITAXEL
     Indication: PELVIC NEOPLASM
     Dosage: 235 MG, TWICE MONTHLY
     Route: 041
     Dates: start: 20170324, end: 20170417
  4. DECADRON [Concomitant]
     Active Substance: DEXAMETHASONE
     Indication: PROPHYLAXIS
     Dosage: 6 MG, 1X/DAY
     Route: 048
     Dates: start: 20170325, end: 20170327
  5. DEXART [Concomitant]
     Active Substance: DEXAMETHASONE SODIUM PHOSPHATE
     Indication: PELVIC NEOPLASM
     Dosage: 16.5 MG, TWICE MONTHLY
     Route: 041
     Dates: start: 20170324, end: 20170417
  6. ELIQUIS [Suspect]
     Active Substance: APIXABAN
     Dosage: 5 MG, 2X/DAY
     Route: 048
     Dates: end: 20170424
  7. GASTER [Concomitant]
     Active Substance: FAMOTIDINE
     Indication: PELVIC NEOPLASM
     Dosage: 20 MG, TWICE MONTHLY
     Route: 041
     Dates: start: 20170324, end: 20170417
  8. POLARAMINE [Concomitant]
     Active Substance: DEXCHLORPHENIRAMINE MALEATE
     Indication: PELVIC NEOPLASM
     Dosage: 5 MG, TWICE MONTHLY
     Route: 041
     Dates: start: 20170324, end: 20170417
  9. ELIQUIS [Suspect]
     Active Substance: APIXABAN
     Indication: PULMONARY EMBOLISM
     Dosage: 10 MG, 2X/DAY
     Route: 048
     Dates: start: 20170308
  10. CARBOPLATIN. [Suspect]
     Active Substance: CARBOPLATIN
     Indication: PELVIC NEOPLASM
     Dosage: 640 MG, TWICE MONTHLY
     Route: 041
     Dates: start: 20170324, end: 20170417

REACTIONS (3)
  - Endocarditis noninfective [Recovering/Resolving]
  - Product use in unapproved indication [Unknown]
  - Cerebral infarction [Recovered/Resolved with Sequelae]

NARRATIVE: CASE EVENT DATE: 20170423
